FAERS Safety Report 5199590-3 (Version None)
Quarter: 2007Q1

REPORT INFORMATION
  Report Type: 
  Country: None (occurrence: None)
  Receive Date: 20070103
  Receipt Date: 20070103
  Transmission Date: 20070707
  Serious: Yes (Hospitalization)
  Sender: FDA-Public Use
  Company Number: None

PATIENT
  Age: 83 Year
  Sex: Female

DRUGS (2)
  1. ZELAPAR [Suspect]
     Indication: PARKINSON'S DISEASE
     Dosage: 1.25MG DAILY ORAL
     Route: 048
     Dates: start: 20061026, end: 20061118
  2. LEXAPRO [Suspect]
     Indication: DEPRESSION
     Dosage: 10MG DAILY ORAL
     Route: 048
     Dates: start: 20061024

REACTIONS (4)
  - ANAEMIA [None]
  - DRUG INTERACTION [None]
  - MENTAL STATUS CHANGES [None]
  - OESOPHAGITIS [None]
